FAERS Safety Report 7527284-5 (Version None)
Quarter: 2011Q2

REPORT INFORMATION
  Report Type: 
  Country: None (occurrence: None)
  Receive Date: 20110603
  Receipt Date: 20110603
  Transmission Date: 20111010
  Serious: No
  Sender: FDA-Public Use
  Company Number: None

PATIENT
  Age: 76 Year
  Sex: Female

DRUGS (1)
  1. CYMBALTA [Suspect]
     Indication: STRESS
     Dosage: 30 MG 1 DAILY
     Dates: start: 20110504

REACTIONS (7)
  - DIARRHOEA [None]
  - NAUSEA [None]
  - FATIGUE [None]
  - ABDOMINAL PAIN [None]
  - ACTIVITIES OF DAILY LIVING IMPAIRED [None]
  - ABDOMINAL DISCOMFORT [None]
  - DECREASED APPETITE [None]
